FAERS Safety Report 14595349 (Version 3)
Quarter: 2025Q2

REPORT INFORMATION
  Report Type: Report from Study
  Country: CA (occurrence: CA)
  Receive Date: 20180302
  Receipt Date: 20250506
  Transmission Date: 20250717
  Serious: Yes (Other)
  Sender: TAKEDA
  Company Number: CA-TAKEDA-2018TUS004971

PATIENT
  Age: 58 Year
  Sex: Male

DRUGS (11)
  1. VEDOLIZUMAB [Suspect]
     Active Substance: VEDOLIZUMAB
     Indication: Colitis ulcerative
  2. VEDOLIZUMAB [Suspect]
     Active Substance: VEDOLIZUMAB
  3. DEXILANT [Suspect]
     Active Substance: DEXLANSOPRAZOLE
     Indication: Product used for unknown indication
  4. ATIVAN [Concomitant]
     Active Substance: LORAZEPAM
  5. ZOPICLONE [Concomitant]
     Active Substance: ZOPICLONE
  6. SYNTHROID [Concomitant]
     Active Substance: LEVOTHYROXINE SODIUM
  7. QUETIAPINE [Concomitant]
     Active Substance: QUETIAPINE
  8. CALCIUM\VITAMIN D [Concomitant]
     Active Substance: CALCIUM\VITAMIN D
  9. Salofalk [Concomitant]
  10. KEPPRA [Concomitant]
     Active Substance: LEVETIRACETAM
  11. MESALAMINE [Concomitant]
     Active Substance: MESALAMINE

REACTIONS (10)
  - Partial seizures [Unknown]
  - Epilepsy [Unknown]
  - Pneumonia [Unknown]
  - Balance disorder [Not Recovered/Not Resolved]
  - COVID-19 [Unknown]
  - Groin pain [Unknown]
  - Musculoskeletal pain [Unknown]
  - Muscular weakness [Not Recovered/Not Resolved]
  - Arthralgia [Unknown]
  - Back pain [Unknown]

NARRATIVE: CASE EVENT DATE: 20180121
